FAERS Safety Report 19709644 (Version 4)
Quarter: 2021Q4

REPORT INFORMATION
  Report Type: Spontaneous
  Country: US (occurrence: US)
  Receive Date: 20210817
  Receipt Date: 20211027
  Transmission Date: 20220304
  Serious: Yes (Hospitalization)
  Sender: FDA-Public Use
  Company Number: US-PFIZER INC-202100932562

PATIENT
  Age: 68 Year
  Sex: Female
  Weight: 61.23 kg

DRUGS (2)
  1. GENOTROPIN [Suspect]
     Active Substance: SOMATROPIN
     Indication: Blood growth hormone abnormal
     Dosage: 0.5 MG
     Dates: start: 20210720
  2. GENOTROPIN [Suspect]
     Active Substance: SOMATROPIN
     Dosage: 0.4 MG, DAILY
     Dates: start: 202107

REACTIONS (5)
  - Device use error [Recovered/Resolved]
  - Wrong device used [Recovered/Resolved]
  - Eye discharge [Unknown]
  - Wrong technique in device usage process [Unknown]
  - Device information output issue [Unknown]

NARRATIVE: CASE EVENT DATE: 20210720
